FAERS Safety Report 6345272-1 (Version None)
Quarter: 2009Q3

REPORT INFORMATION
  Report Type: 
  Country: None (occurrence: None)
  Receive Date: 20090821
  Receipt Date: 20090622
  Transmission Date: 20100115
  Serious: No
  Sender: FDA-Public Use
  Company Number: 8048198

PATIENT
  Age: 18 Year

DRUGS (1)
  1. CIMZIA [Suspect]

REACTIONS (3)
  - ARTHRALGIA [None]
  - PYREXIA [None]
  - RASH [None]
